FAERS Safety Report 9406977 (Version 1)
Quarter: 2013Q3

REPORT INFORMATION
  Report Type: Spontaneous
  Country: US (occurrence: US)
  Receive Date: 20130718
  Receipt Date: 20130718
  Transmission Date: 20140515
  Serious: No
  Sender: FDA-Public Use
  Company Number: US-PFIZER INC-2013206455

PATIENT
  Age: 65 Year
  Sex: Female
  Weight: 75.74 kg

DRUGS (4)
  1. PIROXICAM [Suspect]
     Indication: ARTHRITIS
     Dosage: 20 MG, 1X/DAY
  2. BENAZEPRIL HYDROCHLORIDE/HYDROCHLOROTHIAZIDE [Concomitant]
     Indication: HYPERTENSION
     Dosage: 20MG / 12.5 MG, 2X/DAY
  3. METFORMIN HYDROCHLORIDE [Concomitant]
     Indication: DIABETES MELLITUS
     Dosage: 1000 MG, 2X/DAY
  4. BYETTA [Concomitant]
     Indication: DIABETES MELLITUS
     Dosage: 5 UG, 2X/DAY

REACTIONS (3)
  - Rash [Unknown]
  - Blister [Unknown]
  - Myalgia [Unknown]
